FAERS Safety Report 25478212 (Version 2)
Quarter: 2025Q4

REPORT INFORMATION
  Report Type: Spontaneous
  Country: CA (occurrence: CA)
  Receive Date: 20250625
  Receipt Date: 20251020
  Transmission Date: 20260118
  Serious: Yes (Life-Threatening, Disabling, Other)
  Sender: ABBVIE
  Company Number: CA-LUNDBECK-DKLU4015977

PATIENT
  Age: 33 Year
  Sex: Female

DRUGS (18)
  1. ESCITALOPRAM [Suspect]
     Active Substance: ESCITALOPRAM OXALATE
     Indication: Product used for unknown indication
     Dosage: 10 MILLIGRAM
     Route: 048
  2. ESCITALOPRAM [Suspect]
     Active Substance: ESCITALOPRAM OXALATE
     Indication: Product used for unknown indication
     Dosage: 3 MILLIGRAM
     Route: 048
  3. MORPHINE [Suspect]
     Active Substance: MORPHINE
     Indication: Pain management
     Route: 065
  4. PAXLOVID [Suspect]
     Active Substance: NIRMATRELVIR\RITONAVIR
     Indication: Product used for unknown indication
     Dosage: 150MG - 100MG
     Route: 065
  5. BILASTINE [Concomitant]
     Active Substance: BILASTINE
     Indication: Seasonal allergy
     Dosage: 20 MILLIGRAM
     Route: 048
  6. ULTIVA [Suspect]
     Active Substance: REMIFENTANIL HYDROCHLORIDE
     Indication: Analgesic therapy
     Route: 042
  7. ACETAMINOPHEN\TRAMADOL HYDROCHLORIDE [Suspect]
     Active Substance: ACETAMINOPHEN\TRAMADOL HYDROCHLORIDE
     Indication: Pain management
     Route: 065
  8. VYVANSE [Suspect]
     Active Substance: LISDEXAMFETAMINE DIMESYLATE
     Indication: Attention deficit hyperactivity disorder
     Dosage: 60 MILLIGRAM
     Route: 048
  9. HERBALS\TURMERIC [Concomitant]
     Active Substance: HERBALS\TURMERIC
     Indication: Product used for unknown indication
  10. AMITRIPTYLINE HYDROCHLORIDE [Suspect]
     Active Substance: AMITRIPTYLINE HYDROCHLORIDE
     Indication: Migraine
     Dosage: 25 MILLIGRAM
     Route: 065
  11. CITALOPRAM [Suspect]
     Active Substance: CITALOPRAM
     Indication: Product used for unknown indication
     Route: 048
  12. ALLEGRA [Concomitant]
     Active Substance: FEXOFENADINE HYDROCHLORIDE
     Indication: Product used for unknown indication
  13. VITAMIN D3 [Concomitant]
     Active Substance: CHOLECALCIFEROL
     Indication: Product used for unknown indication
     Dosage: STRENGTH: 1000IU
  14. PEPCID [Concomitant]
     Active Substance: FAMOTIDINE
     Indication: Product used for unknown indication
     Dosage: STRENGTH: 20MG
  15. Alpha gpc [Concomitant]
     Indication: Product used for unknown indication
  16. Hydrolyzed Collagen [Concomitant]
     Indication: Product used for unknown indication
     Dosage: ORGANIKA HEALTH PRODUCTS INC. ENHANCED COLLAGEN POWDER
  17. Liver support [Concomitant]
     Indication: Product used for unknown indication
  18. Magnesium bisglycinate [Concomitant]
     Indication: Product used for unknown indication
     Dosage: MEDICINAL PRODUCT NAME: ORGANIKA

REACTIONS (81)
  - Paraesthesia [Not Recovered/Not Resolved]
  - Haemorrhage [Not Recovered/Not Resolved]
  - Hepatic pain [Not Recovered/Not Resolved]
  - Sedation complication [Not Recovered/Not Resolved]
  - Tremor [Not Recovered/Not Resolved]
  - Product size issue [Not Recovered/Not Resolved]
  - Hyperhidrosis [Not Recovered/Not Resolved]
  - Therapy interrupted [Not Recovered/Not Resolved]
  - Cytokine storm [Unknown]
  - Alopecia [Not Recovered/Not Resolved]
  - Joint swelling [Unknown]
  - Temperature regulation disorder [Not Recovered/Not Resolved]
  - Brain fog [Not Recovered/Not Resolved]
  - Feeling abnormal [Not Recovered/Not Resolved]
  - Headache [Not Recovered/Not Resolved]
  - Vaginal disorder [Not Recovered/Not Resolved]
  - Blood pressure systolic increased [Not Recovered/Not Resolved]
  - Transcription medication error [Unknown]
  - Chills [Not Recovered/Not Resolved]
  - Breast pain [Not Recovered/Not Resolved]
  - Rash [Recovered/Resolved]
  - Blood pressure diastolic increased [Not Recovered/Not Resolved]
  - Product availability issue [Not Recovered/Not Resolved]
  - Pain [Not Recovered/Not Resolved]
  - Anorectal disorder [Not Recovered/Not Resolved]
  - Arthralgia [Not Recovered/Not Resolved]
  - Product physical issue [Not Recovered/Not Resolved]
  - Rash erythematous [Not Recovered/Not Resolved]
  - Hypoxia [Not Recovered/Not Resolved]
  - Dyspnoea [Not Recovered/Not Resolved]
  - Product substitution issue [Not Recovered/Not Resolved]
  - Peripheral swelling [Unknown]
  - Alopecia [Not Recovered/Not Resolved]
  - Product colour issue [Not Recovered/Not Resolved]
  - Swelling [Not Recovered/Not Resolved]
  - Dysphagia [Not Recovered/Not Resolved]
  - Hyperhidrosis [Not Recovered/Not Resolved]
  - Condition aggravated [Not Recovered/Not Resolved]
  - Mast cell activation syndrome [Unknown]
  - Cognitive disorder [Not Recovered/Not Resolved]
  - Cognitive disorder [Not Recovered/Not Resolved]
  - Product formulation issue [Not Recovered/Not Resolved]
  - Gastrointestinal pain [Not Recovered/Not Resolved]
  - Anxiety [Not Recovered/Not Resolved]
  - Hypoxia [Not Recovered/Not Resolved]
  - Withdrawal syndrome [Not Recovered/Not Resolved]
  - Photosensitivity reaction [Not Recovered/Not Resolved]
  - Delayed recovery from anaesthesia [Not Recovered/Not Resolved]
  - Product taste abnormal [Not Recovered/Not Resolved]
  - Rash erythematous [Not Recovered/Not Resolved]
  - Inadequate analgesia [Not Recovered/Not Resolved]
  - Dysphagia [Not Recovered/Not Resolved]
  - Suspected product tampering [Not Recovered/Not Resolved]
  - Drug interaction [Unknown]
  - Bradypnoea [Not Recovered/Not Resolved]
  - Urinary tract pain [Not Recovered/Not Resolved]
  - Abdominal pain [Not Recovered/Not Resolved]
  - Underdose [Unknown]
  - Dyspnoea [Not Recovered/Not Resolved]
  - Heart rate increased [Not Recovered/Not Resolved]
  - Tremor [Not Recovered/Not Resolved]
  - Attention deficit hyperactivity disorder [Not Recovered/Not Resolved]
  - Product physical consistency issue [Not Recovered/Not Resolved]
  - Anorectal disorder [Not Recovered/Not Resolved]
  - Product shape issue [Not Recovered/Not Resolved]
  - Withdrawal syndrome [Recovered/Resolved]
  - Dyspepsia [Not Recovered/Not Resolved]
  - Hepatic pain [Not Recovered/Not Resolved]
  - Arthralgia [Not Recovered/Not Resolved]
  - Pain [Unknown]
  - Burning sensation [Not Recovered/Not Resolved]
  - Wrong technique in product usage process [Unknown]
  - Product dosage form issue [Not Recovered/Not Resolved]
  - Drug ineffective [Not Recovered/Not Resolved]
  - Inadequate analgesia [Not Recovered/Not Resolved]
  - Haemorrhage [Not Recovered/Not Resolved]
  - Respiratory depression [Not Recovered/Not Resolved]
  - Acute stress disorder [Unknown]
  - Blood pressure diastolic increased [Not Recovered/Not Resolved]
  - Dyspepsia [Not Recovered/Not Resolved]
  - Attention deficit hyperactivity disorder [Not Recovered/Not Resolved]
